FAERS Safety Report 11459126 (Version 2)
Quarter: 2016Q2

REPORT INFORMATION
  Report Type: Spontaneous
  Country: US (occurrence: US)
  Receive Date: 20150904
  Receipt Date: 20160512
  Transmission Date: 20160815
  Serious: No
  Sender: FDA-Public Use
  Company Number: US-PFIZER INC-2015292006

PATIENT
  Age: 49 Year
  Sex: Male

DRUGS (2)
  1. GEODON [Suspect]
     Active Substance: ZIPRASIDONE HYDROCHLORIDE\ZIPRASIDONE MESYLATE
     Indication: AUTISM
     Dosage: UNK
  2. ZIPRASIDONE HCL [Suspect]
     Active Substance: ZIPRASIDONE HYDROCHLORIDE
     Dosage: 20 MG, UNK
     Dates: start: 201510

REACTIONS (9)
  - Gynaecomastia [Unknown]
  - Fatigue [Unknown]
  - Balance disorder [Unknown]
  - Abdominal discomfort [Unknown]
  - Weight increased [Unknown]
  - Tachycardia [Unknown]
  - Heart rate irregular [Unknown]
  - Abnormal behaviour [Unknown]
  - Somnolence [Unknown]
